FAERS Safety Report 16618245 (Version 3)
Quarter: 2019Q3

REPORT INFORMATION
  Report Type: Report from Study
  Country: CA (occurrence: CA)
  Receive Date: 20190723
  Receipt Date: 20190827
  Transmission Date: 20191004
  Serious: Yes (Other)
  Sender: FDA-Public Use
  Company Number: CA-JNJFOC-20190616789

PATIENT
  Age: 42 Year
  Sex: Female
  Weight: 74.1 kg

DRUGS (9)
  1. REMICADE [Suspect]
     Active Substance: INFLIXIMAB
     Route: 042
     Dates: start: 20100226
  2. GABAPENTIN. [Concomitant]
     Active Substance: GABAPENTIN
  3. FENTANYL. [Concomitant]
     Active Substance: FENTANYL
  4. MARIJUANA [Concomitant]
     Active Substance: CANNABIS SATIVA SUBSP. INDICA TOP
  5. BUDESONIDE EASYHALER [Concomitant]
     Active Substance: BUDESONIDE
  6. REMICADE [Suspect]
     Active Substance: INFLIXIMAB
     Indication: PSORIATIC ARTHROPATHY
     Route: 042
  7. SYMBICORT [Concomitant]
     Active Substance: BUDESONIDE\FORMOTEROL FUMARATE DIHYDRATE
  8. REMICADE [Suspect]
     Active Substance: INFLIXIMAB
     Indication: ANKYLOSING SPONDYLITIS
     Route: 042
  9. NABILONE [Concomitant]
     Active Substance: NABILONE

REACTIONS (4)
  - Oral infection [Recovered/Resolved]
  - Toothache [Unknown]
  - Basal cell carcinoma [Unknown]
  - Psoriatic arthropathy [Not Recovered/Not Resolved]

NARRATIVE: CASE EVENT DATE: 2019
